FAERS Safety Report 25065198 (Version 1)
Quarter: 2025Q1

REPORT INFORMATION
  Report Type: Report from Study
  Country: GB (occurrence: GB)
  Receive Date: 20250311
  Receipt Date: 20250311
  Transmission Date: 20250408
  Serious: Yes (Other)
  Sender: FENNEC PHARMACEUTICALS
  Company Number: GB-FENNEC PHARMACEUTICALS, INC.-2025FEN00029

PATIENT
  Age: 2 Year
  Sex: Female
  Weight: 13.3 kg

DRUGS (7)
  1. SODIUM THIOSULFATE [Suspect]
     Active Substance: SODIUM THIOSULFATE
     Route: 042
     Dates: start: 2025, end: 2025
  2. SODIUM THIOSULFATE [Suspect]
     Active Substance: SODIUM THIOSULFATE
     Route: 042
     Dates: start: 20250221, end: 20250221
  3. CISPLATIN [Concomitant]
     Active Substance: CISPLATIN
     Dates: start: 20250114
  4. VINCRISTINE [Concomitant]
     Active Substance: VINCRISTINE
  5. APREPITANT [Concomitant]
     Active Substance: APREPITANT
  6. ONDANSETRON [Concomitant]
     Active Substance: ONDANSETRON
  7. LEVOMEPROMAZINE [Concomitant]
     Active Substance: LEVOMEPROMAZINE

REACTIONS (5)
  - Mental status changes [Recovered/Resolved]
  - Hypotonia [Recovered/Resolved]
  - Hypernatraemia [Recovered/Resolved]
  - Metabolic acidosis [Recovered/Resolved]
  - Hypokalaemia [Recovered/Resolved]

NARRATIVE: CASE EVENT DATE: 20250221
